FAERS Safety Report 5444438-2 (Version None)
Quarter: 2007Q3

REPORT INFORMATION
  Report Type: 
  Country: None (occurrence: None)
  Receive Date: 20070830
  Receipt Date: 20070820
  Transmission Date: 20080115
  Serious: Yes (Death)
  Sender: FDA-Public Use
  Company Number: B0484301A

PATIENT

DRUGS (4)
  1. TOPOTECAN HYDROCHLORIDE CAPSULE (GENERIC) (TOPOTECAN) [Suspect]
     Indication: SMALL CELL LUNG CANCER STAGE UNSPECIFIED
     Dosage: 1.5 MG/M2 CYCLIC  / ORAL
     Route: 048
  2. PACLITAXEL [Suspect]
     Indication: SMALL CELL LUNG CANCER STAGE UNSPECIFIED
     Dosage: 110 MG/M2 / CYCLIC / INTRAVENOUS
     Route: 042
  3. ETOPOSIDE [Concomitant]
     Indication: SMALL CELL LUNG CANCER STAGE UNSPECIFIED
     Dosage: 160 MG/M2 / CYCLIC / ORAL
     Route: 048
  4. NEUPOGEN [Concomitant]

REACTIONS (3)
  - ANAEMIA [None]
  - DRUG TOXICITY [None]
  - MYOCARDIAL ISCHAEMIA [None]
